FAERS Safety Report 7786146-9 (Version None)
Quarter: 2011Q3

REPORT INFORMATION
  Report Type: 
  Country: None (occurrence: None)
  Receive Date: 20110929
  Receipt Date: 20110922
  Transmission Date: 20111222
  Serious: Yes (Hospitalization)
  Sender: FDA-Public Use
  Company Number: US-PFIZER INC-2009243043

PATIENT
  Sex: Female
  Weight: 89.342 kg

DRUGS (16)
  1. DEPAKOTE [Suspect]
     Indication: CONVULSION
     Dosage: 1000 MG, 2X/DAY
     Route: 048
     Dates: start: 19930101
  2. FERROUS SULFATE [Concomitant]
     Dosage: UNK
     Route: 048
  3. VASOTEC [Concomitant]
     Dosage: UNK
     Route: 048
  4. FOLIC ACID [Concomitant]
     Route: 048
  5. PREGABALIN [Suspect]
     Indication: PARTIAL SEIZURES
     Dosage: 150 MG, 2X/DAY
     Route: 048
     Dates: start: 20090609, end: 20090719
  6. MULTI-VITAMINS [Concomitant]
     Dosage: UNK
     Route: 048
  7. CALCIUM WITH VITAMIN D [Concomitant]
     Dosage: UNK
     Route: 048
  8. ZYRTEC [Concomitant]
     Dosage: UNK
     Route: 048
  9. CYMBALTA [Concomitant]
     Dosage: UNK
     Route: 048
  10. FIORINAL [Concomitant]
     Dosage: UNK
     Route: 048
     Dates: start: 19690101
  11. ALBUTEROL [Concomitant]
     Dosage: UNK
     Route: 055
  12. LOPRESSOR [Concomitant]
     Dosage: UNK
     Route: 048
  13. VISTARIL [Concomitant]
     Dosage: UNK
     Route: 048
     Dates: start: 20090402
  14. VITAMIN D [Concomitant]
     Dosage: UNK
     Route: 048
  15. VITAMIN B-12 [Concomitant]
     Dosage: UNK
  16. ASCORBIC ACID [Concomitant]
     Dosage: UNK
     Route: 048

REACTIONS (1)
  - GRAND MAL CONVULSION [None]
